FAERS Safety Report 7652544-7 (Version None)
Quarter: 2011Q3

REPORT INFORMATION
  Report Type: 
  Country: None (occurrence: None)
  Receive Date: 20110722
  Receipt Date: 20110511
  Transmission Date: 20111222
  Serious: Yes (Hospitalization)
  Sender: FDA-Public Use
  Company Number: UTC-007067

PATIENT
  Age: 53 Year
  Sex: Female

DRUGS (1)
  1. REMODULIN [Suspect]
     Indication: PULMONARY ARTERIAL HYPERTENSION
     Dosage: 28.8 UG/KG (0.02 UG/KG,1 IN 1 MIN),INTRAVENOUS
     Route: 042
     Dates: start: 20110301

REACTIONS (2)
  - OEDEMA PERIPHERAL [None]
  - PRESYNCOPE [None]
